FAERS Safety Report 19437071 (Version 1)
Quarter: 2021Q2

REPORT INFORMATION
  Report Type: Spontaneous
  Country: JP (occurrence: JP)
  Receive Date: 20210618
  Receipt Date: 20210618
  Transmission Date: 20210717
  Serious: Yes (Death, Other)
  Sender: FDA-Public Use
  Company Number: JP-ASTRAZENECA-2021A536010

PATIENT
  Age: 59 Year
  Sex: Male

DRUGS (4)
  1. IRESSA [Suspect]
     Active Substance: GEFITINIB
     Indication: LUNG ADENOCARCINOMA
     Route: 048
  2. TARCEVA [Concomitant]
     Active Substance: ERLOTINIB HYDROCHLORIDE
     Indication: LUNG ADENOCARCINOMA
     Dosage: DOSE UNKNOWN
     Route: 065
  3. IRESSA [Suspect]
     Active Substance: GEFITINIB
     Indication: LUNG ADENOCARCINOMA
     Route: 048
  4. IRESSA [Suspect]
     Active Substance: GEFITINIB
     Indication: LUNG ADENOCARCINOMA
     Dosage: 250 MG, ON 3?DAY?ON, 1?DAY?OFF BASIS.
     Route: 048

REACTIONS (8)
  - Metastases to liver [Unknown]
  - Hepatic function abnormal [Unknown]
  - Death [Fatal]
  - Osteonecrosis of jaw [Unknown]
  - Malaise [Unknown]
  - Metastases to bone [Unknown]
  - Off label use [Unknown]
  - Rash [Unknown]
